FAERS Safety Report 24737268 (Version 1)
Quarter: 2024Q4

REPORT INFORMATION
  Report Type: Spontaneous
  Country: JP (occurrence: US)
  Receive Date: 20241216
  Receipt Date: 20241216
  Transmission Date: 20250114
  Serious: Yes (Other)
  Sender: NOVARTIS
  Company Number: JP-002147023-NVSC2024US237743

PATIENT
  Age: 73 Year
  Sex: Female

DRUGS (2)
  1. EVEROLIMUS [Suspect]
     Active Substance: EVEROLIMUS
     Indication: Endometrial cancer
     Dosage: UNK
     Route: 065
  2. LENVATINIB [Suspect]
     Active Substance: LENVATINIB
     Indication: Endometrial cancer
     Dosage: UNK
     Route: 065

REACTIONS (3)
  - Endometrial cancer [Unknown]
  - Malignant neoplasm progression [Unknown]
  - Off label use [Unknown]
